FAERS Safety Report 8158620 (Version 4)
Quarter: 2013Q3

REPORT INFORMATION
  Report Type: Report from Study
  Country: US (occurrence: US)
  Receive Date: 20110927
  Receipt Date: 20130724
  Transmission Date: 20140515
  Serious: Yes (Other)
  Sender: FDA-Public Use
  Company Number: US-UCBSA-041813

PATIENT
  Age: 33 Year
  Sex: Female
  Weight: 55 kg

DRUGS (11)
  1. CIMZIA [Suspect]
     Indication: CROHN^S DISEASE
     Dosage: INITIATED ON 27/JAN/2009 AT A DOSE OF 400 MG
     Route: 058
     Dates: start: 20110720
  2. FOLIC ACID [Concomitant]
     Indication: CROHN^S DISEASE
     Dosage: DOSE FREQ.: DAILY
     Route: 048
     Dates: start: 20090114
  3. MULTIVITAMINS [Concomitant]
     Indication: CROHN^S DISEASE
     Route: 048
     Dates: start: 200902
  4. CALCIUM [Concomitant]
     Indication: CROHN^S DISEASE
  5. ACETAMINOPHEN [Concomitant]
     Indication: CROHN^S DISEASE
  6. COMPAZINE [Concomitant]
     Route: 048
     Dates: start: 20090127
  7. COMPAZINE [Concomitant]
     Route: 048
     Dates: start: 20090204
  8. COUMADIN [Concomitant]
     Indication: PULMONARY EMBOLISM
     Dosage: 7.5MG (MON, WED, FRI)  10 MG TUES, THUR, SAT, SUN) DOSE FREQ.: DAILY
     Route: 048
     Dates: start: 200509
  9. LOTEMAX [Concomitant]
     Dosage: 0.5% GTT OS
     Route: 047
     Dates: start: 20100310, end: 2011
  10. METHOTREXATE [Concomitant]
     Indication: CROHN^S DISEASE
     Dosage: UNKNOWN
     Dates: start: 20090127, end: 20101028
  11. METHOTREXATE [Concomitant]
     Indication: CROHN^S DISEASE
     Dosage: UNKNOWN
     Dates: start: 20101028, end: 20120918

REACTIONS (1)
  - Psoriasis [Recovered/Resolved]
